FAERS Safety Report 21215198 (Version 1)
Quarter: 2022Q3

REPORT INFORMATION
  Report Type: Spontaneous
  Country: ZW (occurrence: ZW)
  Receive Date: 20220816
  Receipt Date: 20220816
  Transmission Date: 20221027
  Serious: Yes (Other)
  Sender: FDA-Public Use
  Company Number: ZW-CIPLA LTD.-2022ZW04834

PATIENT
  Sex: Male

DRUGS (2)
  1. LAMIVUDINE\NEVIRAPINE\ZIDOVUDINE [Suspect]
     Active Substance: LAMIVUDINE\NEVIRAPINE\ZIDOVUDINE
     Indication: Human immunodeficiency virus transmission
     Dosage: UNK
     Route: 065
  2. LAMIVUDINE\NEVIRAPINE\ZIDOVUDINE [Suspect]
     Active Substance: LAMIVUDINE\NEVIRAPINE\ZIDOVUDINE
     Indication: HIV infection

REACTIONS (1)
  - Virologic failure [Unknown]
